FAERS Safety Report 15736736 (Version 1)
Quarter: 2018Q4

REPORT INFORMATION
  Report Type: Spontaneous
  Country: US (occurrence: US)
  Receive Date: 20181204
  Receipt Date: 20181204
  Transmission Date: 20190205
  Serious: Yes (Hospitalization)
  Sender: FDA-Public Use
  Company Number: None

PATIENT
  Age: 17 Year
  Sex: Female

DRUGS (1)
  1. QBREXZA [Suspect]
     Active Substance: GLYCOPYRRONIUM TOSYLATE
     Indication: HYPERHIDROSIS
     Route: 061
     Dates: start: 20181121, end: 20181203

REACTIONS (3)
  - Dry mouth [None]
  - Urinary retention [None]
  - Lethargy [None]

NARRATIVE: CASE EVENT DATE: 20181203
